FAERS Safety Report 9738472 (Version 1)
Quarter: 2013Q4

REPORT INFORMATION
  Report Type: Spontaneous
  Country: PL (occurrence: PL)
  Receive Date: 20131208
  Receipt Date: 20131208
  Transmission Date: 20140711
  Serious: Yes (Death, Hospitalization)
  Sender: FDA-Public Use
  Company Number: PL-MYLANLABS-2013S1026931

PATIENT
  Age: 42 Year
  Sex: Female

DRUGS (2)
  1. ANAFRANIL SR [Suspect]
     Indication: INTENTIONAL OVERDOSE
     Dosage: DF = 75MG TABLET
     Route: 048
  2. DOXEPIN [Suspect]
     Indication: INTENTIONAL OVERDOSE
     Dosage: DF = 25MG CAPSULE
     Route: 048

REACTIONS (9)
  - Toxicity to various agents [Fatal]
  - Intentional overdose [Fatal]
  - Suicidal ideation [Fatal]
  - Cardiovascular insufficiency [Not Recovered/Not Resolved]
  - Multi-organ failure [Fatal]
  - Bezoar [Fatal]
  - Altered state of consciousness [Not Recovered/Not Resolved]
  - Respiratory failure [Not Recovered/Not Resolved]
  - Convulsion [Unknown]
